FAERS Safety Report 18833293 (Version 1)
Quarter: 2021Q1

REPORT INFORMATION
  Report Type: Spontaneous
  Country: US (occurrence: US)
  Receive Date: 20210203
  Receipt Date: 20210203
  Transmission Date: 20210419
  Serious: Yes (Hospitalization)
  Sender: FDA-Public Use
  Company Number: None

PATIENT
  Age: 76 Year
  Sex: Male

DRUGS (2)
  1. GEMCITABINE (GEMCITABINE HCL 1MG/VIL INJ) [Suspect]
     Active Substance: GEMCITABINE HYDROCHLORIDE
     Indication: NEOPLASM MALIGNANT
     Dates: start: 20200424
  2. PACLITAXEL (PACLITAXEL 30MG/5ML INJ, CONC) [Suspect]
     Active Substance: PACLITAXEL
     Indication: NEOPLASM MALIGNANT
     Dates: start: 20200810, end: 20200908

REACTIONS (2)
  - Dyspnoea exertional [None]
  - Polyneuropathy [None]

NARRATIVE: CASE EVENT DATE: 20201009
